FAERS Safety Report 26087061 (Version 1)
Quarter: 2025Q4

REPORT INFORMATION
  Report Type: Spontaneous
  Country: IN (occurrence: IN)
  Receive Date: 20251125
  Receipt Date: 20251125
  Transmission Date: 20260118
  Serious: Yes (Other)
  Sender: REGENERON
  Company Number: IN-BAYER-2025A153611

PATIENT
  Sex: Male

DRUGS (7)
  1. EYLEA [Suspect]
     Active Substance: AFLIBERCEPT
     Indication: Retinal vein occlusion
     Dosage: UNK, 40 MG/ML
     Dates: start: 20250505
  2. EYLEA [Suspect]
     Active Substance: AFLIBERCEPT
     Dosage: UNK, 40 MG/ML
     Dates: start: 20251018
  3. EYLEA [Suspect]
     Active Substance: AFLIBERCEPT
     Dosage: 2 MG, 40 MG/ML
     Dates: start: 20251025
  4. OMNACORTIL [PREDNISOLONE] [Concomitant]
     Indication: Retinal vein occlusion
     Dosage: UNK
     Dates: start: 20251018
  5. OMNACORTIL [PREDNISOLONE] [Concomitant]
     Indication: Cystoid macular oedema
     Dosage: UNK
  6. OMEPRAZOLE [Concomitant]
     Active Substance: OMEPRAZOLE
     Indication: Retinal vein occlusion
     Dosage: 20 MG
     Dates: start: 20251018
  7. OMEPRAZOLE [Concomitant]
     Active Substance: OMEPRAZOLE
     Indication: Cystoid macular oedema

REACTIONS (2)
  - Macular ischaemia [Not Recovered/Not Resolved]
  - Visual impairment [Unknown]

NARRATIVE: CASE EVENT DATE: 20251025
